FAERS Safety Report 8264371-0 (Version None)
Quarter: 2012Q2

REPORT INFORMATION
  Report Type: 
  Country: None (occurrence: None)
  Receive Date: 20120406
  Receipt Date: 20120327
  Transmission Date: 20120825
  Serious: Yes (Other)
  Sender: FDA-Public Use
  Company Number: PHHY2012AR026925

PATIENT
  Sex: Female

DRUGS (11)
  1. DIOVAN [Suspect]
     Indication: PROTEINURIA
     Dosage: 80 MG, DAILY
     Dates: start: 20010101, end: 20111120
  2. TRILEPTAL [Concomitant]
     Indication: CONVULSION
     Dosage: 300 MG, TID
     Dates: start: 20090101
  3. LEVOTHYROXINE SODIUM [Concomitant]
     Indication: HYPOTHYROIDISM
     Dosage: 75 UG, DAILY
  4. PREDNISONE TAB [Concomitant]
     Dosage: 8 MG, DAILY
  5. FUROSEMIDE [Concomitant]
     Indication: PROTEINURIA
     Dosage: 40 MG, UNK
     Dates: start: 20010101, end: 20110520
  6. STEROIDS NOS [Concomitant]
     Dosage: UNK
     Dates: start: 20111124
  7. METHYLPREDNISOLONE [Concomitant]
     Indication: PROTEINURIA
     Dosage: 20 MG, DAILY
  8. METHYLPREDNISOLONE [Concomitant]
     Dosage: 40 MG, DAILY
  9. ENALAPRIL [Concomitant]
     Indication: PROTEINURIA
     Dosage: 20 MG, DAILY
     Dates: start: 20110101, end: 20111120
  10. ENALAPRIL [Concomitant]
     Dosage: 10 MG, DAILY
     Dates: start: 20111124
  11. FUROSEMIDE [Concomitant]
     Dosage: 80 MG, DAILY
     Dates: start: 20111124

REACTIONS (5)
  - PROTEINURIA [None]
  - BLOOD CREATININE INCREASED [None]
  - PREMATURE DELIVERY [None]
  - MATERNAL EXPOSURE DURING PREGNANCY [None]
  - PRE-ECLAMPSIA [None]
